FAERS Safety Report 8518573-6 (Version None)
Quarter: 2012Q3

REPORT INFORMATION
  Report Type: 
  Country: None (occurrence: None)
  Receive Date: 20120718
  Receipt Date: 20120523
  Transmission Date: 20120928
  Serious: No
  Sender: FDA-Public Use
  Company Number: US-BRISTOL-MYERS SQUIBB COMPANY-16624587

PATIENT

DRUGS (2)
  1. CRESTOR [Suspect]
  2. COUMADIN [Suspect]
     Indication: THROMBOSIS

REACTIONS (2)
  - PAIN [None]
  - GLUCOSE TOLERANCE IMPAIRED [None]
